FAERS Safety Report 8326949-5 (Version None)
Quarter: 2012Q2

REPORT INFORMATION
  Report Type: 
  Country: None (occurrence: None)
  Receive Date: 20120501
  Receipt Date: 20120430
  Transmission Date: 20120825
  Serious: Yes (Death, Other)
  Sender: FDA-Public Use
  Company Number: JP-AMGEN-JPNSP2012004055

PATIENT
  Age: 80 Year
  Sex: Female

DRUGS (21)
  1. ADONA [Concomitant]
     Indication: CEREBRAL HAEMORRHAGE
     Dosage: UNCERTAINTY
     Route: 058
  2. VITAMIN C [Concomitant]
     Indication: EATING DISORDER
     Dosage: UNCERTAINTY
     Route: 041
  3. SOLDEM 3AG [Concomitant]
     Indication: EATING DISORDER
     Dosage: UNCERTAINTY
     Route: 041
  4. VOLVIX [Concomitant]
     Indication: EATING DISORDER
     Dosage: UNCERTAINTY
     Route: 041
  5. MAGNESIUM SULFATE [Concomitant]
     Indication: EATING DISORDER
     Dosage: UNCERTAINTY
     Route: 041
  6. NICARDIPINE HCL [Concomitant]
     Indication: HYPERTENSION
     Dosage: UNCERTAINTY
     Route: 041
  7. MIRACLID [Concomitant]
     Indication: CIRCULATORY COLLAPSE
     Dosage: UNCERTAINTY
     Route: 041
  8. POTASSIUM CHLORIDE [Concomitant]
     Indication: EATING DISORDER
     Dosage: UNCERTAINTY
     Route: 041
  9. FUNGUARD [Concomitant]
     Indication: PNEUMONIA
     Dosage: UNCERTAINTY
     Route: 041
  10. PROMACTA [Concomitant]
     Dosage: UNK
     Dates: start: 20110801
  11. SOLCOSERYL [Concomitant]
     Indication: UPPER GASTROINTESTINAL HAEMORRHAGE
     Dosage: UNCERTAINTY
     Route: 030
  12. GLYCEREB [Concomitant]
     Indication: CEREBRAL HAEMORRHAGE
     Dosage: UNCERTAINTY
     Route: 041
  13. OMEPRAZOLE [Concomitant]
     Indication: UPPER GASTROINTESTINAL HAEMORRHAGE
     Dosage: UNCERTAINTY
     Route: 041
  14. KAYTWO [Concomitant]
     Indication: EATING DISORDER
     Dosage: UNCERTAINTY
     Route: 041
  15. TRIB [Concomitant]
     Indication: EATING DISORDER
     Dosage: UNCERTAINTY
     Route: 041
  16. NEO-MINOPHAGEN C [Concomitant]
     Indication: HEPATIC FUNCTION ABNORMAL
     Dosage: UNCERTAINTY
     Route: 041
  17. HUMULIN R [Concomitant]
     Indication: DIABETES MELLITUS
     Dosage: UNCERTAINTY
     Route: 058
  18. AMINO ACID INJ [Concomitant]
     Indication: EATING DISORDER
     Dosage: UNCERTAINTY
     Route: 041
  19. ROMIPLOSTIM - KHK [Suspect]
     Indication: IDIOPATHIC THROMBOCYTOPENIC PURPURA
     Dosage: 1 MUG/KG, QD
     Route: 058
     Dates: start: 20120111, end: 20120111
  20. TRANEXAMIC ACID [Concomitant]
     Indication: UPPER GASTROINTESTINAL HAEMORRHAGE
     Dosage: UNCERTAINTY
     Route: 041
  21. LEVOFLOXACIN [Concomitant]
     Indication: PNEUMONIA
     Dosage: UNCERTAINTY
     Route: 041

REACTIONS (2)
  - HYPERTENSION [None]
  - ACUTE RESPIRATORY FAILURE [None]
